FAERS Safety Report 19697906 (Version 2)
Quarter: 2021Q3

REPORT INFORMATION
  Report Type: Spontaneous
  Country: PT (occurrence: PT)
  Receive Date: 20210812
  Receipt Date: 20210826
  Transmission Date: 20211014
  Serious: Yes (Life-Threatening, Hospitalization, Other)
  Sender: FDA-Public Use
  Company Number: PT-BAXTER-2021BAX023968

PATIENT
  Age: 77 Year
  Sex: Female

DRUGS (3)
  1. MIDAZOLAM. [Concomitant]
     Active Substance: MIDAZOLAM
     Indication: PRODUCT USED FOR UNKNOWN INDICATION
     Route: 042
  2. LIDOCA?NA CLARIS 20 MG/ML, SOLUC?O INJETAVE [Suspect]
     Active Substance: LIDOCAINE HYDROCHLORIDE
     Indication: LOCAL ANAESTHESIA
     Dosage: 20 MG/ML
     Route: 065
  3. FENTANYL. [Concomitant]
     Active Substance: FENTANYL
     Indication: PRODUCT USED FOR UNKNOWN INDICATION
     Route: 042

REACTIONS (3)
  - Overdose [Unknown]
  - Altered state of consciousness [Recovered/Resolved]
  - Local anaesthetic systemic toxicity [Recovered/Resolved]
